FAERS Safety Report 17339219 (Version 1)
Quarter: 2020Q1

REPORT INFORMATION
  Report Type: Spontaneous
  Country: US (occurrence: US)
  Receive Date: 20200129
  Receipt Date: 20200129
  Transmission Date: 20200409
  Serious: Yes (Hospitalization)
  Sender: FDA-Public Use
  Company Number: US-009507513-2001USA009524

PATIENT
  Sex: Female

DRUGS (2)
  1. KEYTRUDA [Suspect]
     Active Substance: PEMBROLIZUMAB
     Dosage: UNK
  2. LENVATINIB MESYLATE [Interacting]
     Active Substance: LENVATINIB MESYLATE
     Indication: ENDOMETRIAL NEOPLASM
     Dosage: 12 MILLIGRAM, ONCE DAILY (3X4 MG, 5 DAY PK-COMM)
     Route: 048
     Dates: start: 20191106, end: 202001

REACTIONS (2)
  - Drug interaction [Unknown]
  - Headache [Unknown]

NARRATIVE: CASE EVENT DATE: 20200111
